FAERS Safety Report 10169774 (Version 1)
Quarter: 2014Q2

REPORT INFORMATION
  Report Type: Spontaneous
  Country: US (occurrence: IT)
  Receive Date: 20140513
  Receipt Date: 20140513
  Transmission Date: 20141212
  Serious: Yes (Other)
  Sender: FDA-Public Use
  Company Number: IT-FRI-1000067296

PATIENT
  Age: 69 Year
  Sex: Female

DRUGS (4)
  1. LINACLOTIDE [Suspect]
     Indication: IRRITABLE BOWEL SYNDROME
     Route: 048
     Dates: start: 20140408
  2. LINACLOTIDE [Suspect]
     Indication: ASTRINGENT THERAPY
     Route: 048
     Dates: start: 201404, end: 20140410
  3. MEPRAL [Concomitant]
     Dosage: 20 MG
  4. BLOPRESS [Concomitant]
     Dosage: 16 MG

REACTIONS (1)
  - Hypertensive crisis [Recovering/Resolving]
